FAERS Safety Report 9281827 (Version 3)
Quarter: 2013Q3

REPORT INFORMATION
  Report Type: Report from Study
  Country: FR (occurrence: FR)
  Receive Date: 20130510
  Receipt Date: 20130828
  Transmission Date: 20140515
  Serious: Yes (Life-Threatening, Hospitalization)
  Sender: FDA-Public Use
  Company Number: FR-ROCHE-1221601

PATIENT
  Age: 64 Year
  Sex: Male
  Weight: 90 kg

DRUGS (2)
  1. RITUXIMAB [Suspect]
     Indication: PEMPHIGUS
     Route: 041
     Dates: start: 20120301
  2. RITUXIMAB [Suspect]
     Route: 042
     Dates: start: 20120315

REACTIONS (1)
  - Pneumocystis jirovecii pneumonia [Unknown]
